FAERS Safety Report 7416382-2 (Version None)
Quarter: 2011Q2

REPORT INFORMATION
  Report Type: 
  Country: None (occurrence: None)
  Receive Date: 20110414
  Receipt Date: 20110414
  Transmission Date: 20111010
  Serious: Yes (Death)
  Sender: FDA-Public Use
  Company Number: CO-PFIZER INC-2011081261

PATIENT
  Age: 68 Year
  Sex: Male

DRUGS (7)
  1. NPH INSULIN [Concomitant]
     Dosage: 80-100 IU/ML, 1X/DAY
     Route: 058
  2. ENALAPRIL [Concomitant]
     Dosage: 20 MG, 2X/DAY
     Route: 048
  3. DIGOXIN [Concomitant]
     Dosage: 0.2 MG/2ML, 1X/DAY
     Route: 042
  4. NORVASC [Suspect]
     Dosage: 10 MG, 1X/DAY
     Route: 048
     Dates: start: 20071001
  5. ESPIRONOLACTONA [Concomitant]
     Dosage: 25 MG, 1X/DAY
  6. LIPITOR [Suspect]
     Indication: DYSLIPIDAEMIA
     Dosage: 10 MG, 1X/DAY
     Route: 048
     Dates: start: 20071001
  7. OMEPRAZOLE [Concomitant]
     Dosage: 20 MG, 1X/DAY

REACTIONS (1)
  - DEATH [None]
